FAERS Safety Report 5116930-1 (Version None)
Quarter: 2006Q3

REPORT INFORMATION
  Report Type: 
  Country: None (occurrence: None)
  Receive Date: 20060925
  Receipt Date: 20060907
  Transmission Date: 20061208
  Serious: Yes (Other)
  Sender: FDA-Public Use
  Company Number: S06-CAN-03072-01

PATIENT
  Age: 50 Year
  Sex: Female

DRUGS (8)
  1. CIPRALEX             (ESCITALOPRAM) [Suspect]
     Indication: DEPRESSION
     Dosage: 10 MG QD PO
     Route: 048
     Dates: start: 20060503
  2. TOPAMAX [Concomitant]
  3. RISPERDAL [Concomitant]
  4. CLONAZEPAM [Concomitant]
  5. DETROL [Concomitant]
  6. IBUPROFEN [Concomitant]
  7. LITHIUM [Concomitant]
  8. MONISTAT (MICONAZOLE NITRATE) [Concomitant]

REACTIONS (3)
  - CONDITION AGGRAVATED [None]
  - CONVULSIVE THRESHOLD LOWERED [None]
  - GRAND MAL CONVULSION [None]
